FAERS Safety Report 8496775-5 (Version None)
Quarter: 2012Q3

REPORT INFORMATION
  Report Type: 
  Country: None (occurrence: None)
  Receive Date: 20120709
  Receipt Date: 20120626
  Transmission Date: 20120928
  Serious: Yes (Congenital Anomaly)
  Sender: FDA-Public Use
  Company Number: DE-MYLANLABS-2012S1012889

PATIENT
  Age: 0 Year
  Sex: Female
  Weight: 3.93 kg

DRUGS (3)
  1. RITALIN [Suspect]
     Dosage: 20 [MG/D ]/ IRREGULAR INTAKE, BEGIN1 YEAR AGO.
     Route: 064
  2. CITALOPRAM HYDROBROMIDE [Suspect]
     Indication: DEPRESSION
     Dosage: 20 [MG/D ]
     Route: 064
  3. FOLIO [Concomitant]
     Indication: PROPHYLAXIS OF NEURAL TUBE DEFECT
     Route: 064

REACTIONS (2)
  - CLEFT LIP AND PALATE [None]
  - MATERNAL EXPOSURE DURING PREGNANCY [None]
